FAERS Safety Report 22884466 (Version 3)
Quarter: 2023Q4

REPORT INFORMATION
  Report Type: Report from Study
  Country: US (occurrence: US)
  Receive Date: 20230830
  Receipt Date: 20231004
  Transmission Date: 20240110
  Serious: Yes (Other)
  Sender: FDA-Public Use
  Company Number: US-002147023-NVSC2023US188392

PATIENT
  Age: 72 Year
  Sex: Female

DRUGS (1)
  1. ENTRESTO [Suspect]
     Active Substance: SACUBITRIL\VALSARTAN
     Indication: Product used for unknown indication
     Dosage: UNK, BID (24/26MG)
     Route: 065
     Dates: start: 20230826

REACTIONS (3)
  - Ejection fraction decreased [Unknown]
  - Nausea [Not Recovered/Not Resolved]
  - Panic reaction [Recovering/Resolving]

NARRATIVE: CASE EVENT DATE: 20230801
